FAERS Safety Report 15142598 (Version 8)
Quarter: 2019Q3

REPORT INFORMATION
  Report Type: Spontaneous
  Country: US (occurrence: US)
  Receive Date: 20180713
  Receipt Date: 20190926
  Transmission Date: 20191004
  Serious: Yes (Hospitalization, Other)
  Sender: FDA-Public Use
  Company Number: US-PFIZER INC-2018235386

PATIENT
  Age: 62 Year
  Sex: Female
  Weight: 70 kg

DRUGS (6)
  1. FUROSEMIDE. [Concomitant]
     Active Substance: FUROSEMIDE
     Indication: LIVER DISORDER
     Dosage: 25 MG, 1X/DAY
  2. OXYCODONE [Concomitant]
     Active Substance: OXYCODONE
     Indication: PAIN
     Dosage: 4 MG (2 TABLETS), EVERY 3 HOURS
  3. LETROZOLE. [Concomitant]
     Active Substance: LETROZOLE
     Dosage: UNK
  4. MORPHINE [Concomitant]
     Active Substance: MORPHINE
     Indication: PAIN
     Dosage: 10 MG, TWICE DAILY
  5. IBRANCE [Suspect]
     Active Substance: PALBOCICLIB
     Indication: BREAST CANCER FEMALE
     Dosage: 125 MG, CYCLIC (ONCE DAILY FOR 21 DAYS)
     Dates: start: 201806
  6. SPIRONOLACTONE. [Concomitant]
     Active Substance: SPIRONOLACTONE
     Indication: LIVER DISORDER
     Dosage: 60 MG, ONCE DAILY

REACTIONS (24)
  - Hip fracture [Unknown]
  - Femur fracture [Unknown]
  - Memory impairment [Unknown]
  - Rectal haemorrhage [Not Recovered/Not Resolved]
  - Vomiting [Recovered/Resolved]
  - Feeling cold [Unknown]
  - Compression fracture [Unknown]
  - Diarrhoea [Not Recovered/Not Resolved]
  - Diplopia [Unknown]
  - Hunger [Unknown]
  - Taste disorder [Unknown]
  - Headache [Not Recovered/Not Resolved]
  - Hypoacusis [Unknown]
  - Nausea [Unknown]
  - Back disorder [Not Recovered/Not Resolved]
  - Weight decreased [Unknown]
  - Malaise [Recovering/Resolving]
  - Thrombosis [Unknown]
  - Pulmonary embolism [Unknown]
  - Dizziness [Unknown]
  - Feeding disorder [Unknown]
  - Night sweats [Unknown]
  - Sleep disorder [Unknown]
  - Eating disorder [Unknown]

NARRATIVE: CASE EVENT DATE: 2018
